FAERS Safety Report 25324632 (Version 1)
Quarter: 2025Q2

REPORT INFORMATION
  Report Type: Spontaneous
  Country: US (occurrence: US)
  Receive Date: 20250516
  Receipt Date: 20250516
  Transmission Date: 20250717
  Serious: No
  Sender: PFIZER
  Company Number: US-PFIZER INC-202500100616

PATIENT
  Age: 56 Year
  Sex: Female
  Weight: 52.16 kg

DRUGS (6)
  1. SOMATROPIN [Suspect]
     Active Substance: SOMATROPIN
     Indication: Growth hormone deficiency
     Dosage: 0.8 MG, 1X/DAY
  2. SOMATROPIN [Suspect]
     Active Substance: SOMATROPIN
     Dosage: 0.4 MG, 1X/DAY
  3. SYNTHROID [Concomitant]
     Active Substance: LEVOTHYROXINE SODIUM
  4. SYNTHROID [Concomitant]
     Active Substance: LEVOTHYROXINE SODIUM
  5. TOPAMAX [Concomitant]
     Active Substance: TOPIRAMATE
     Indication: Headache
  6. TOPAMAX [Concomitant]
     Active Substance: TOPIRAMATE
     Indication: Neuralgia

REACTIONS (2)
  - Headache [Unknown]
  - Fatigue [Unknown]
